FAERS Safety Report 14900157 (Version 1)
Quarter: 2018Q2

REPORT INFORMATION
  Report Type: Spontaneous
  Country: CO (occurrence: CO)
  Receive Date: 20180516
  Receipt Date: 20180516
  Transmission Date: 20180711
  Serious: Yes (Death, Hospitalization)
  Sender: FDA-Public Use
  Company Number: CO-ORPHAN EUROPE-2047895

PATIENT
  Age: 3 Month
  Sex: Female
  Weight: 2.1 kg

DRUGS (2)
  1. CARBAGLU [Suspect]
     Active Substance: CARGLUMIC ACID
     Indication: UREA CYCLE DISORDER
     Dates: start: 20180129
  2. CARBAGLU [Suspect]
     Active Substance: CARGLUMIC ACID
     Indication: HYPERAMMONAEMIA
     Dates: start: 20180129

REACTIONS (9)
  - Haemoglobin decreased [Unknown]
  - Haemodialysis [None]
  - Iatrogenic injury [None]
  - Perforation of great vessels [Fatal]
  - Fluid retention [None]
  - Multiple organ dysfunction syndrome [None]
  - Cardio-respiratory arrest [None]
  - Pulmonary oedema [None]
  - Renal failure [None]

NARRATIVE: CASE EVENT DATE: 20180418
